FAERS Safety Report 13255520 (Version 1)
Quarter: 2017Q1

REPORT INFORMATION
  Report Type: Spontaneous
  Country: US (occurrence: US)
  Receive Date: 20170218
  Receipt Date: 20170218
  Transmission Date: 20170428
  Serious: Yes (Other)
  Sender: FDA-Public Use
  Company Number: None

PATIENT
  Age: 35 Year
  Sex: Male
  Weight: 78.75 kg

DRUGS (5)
  1. ROBITUSSIN 12 HOUR COUGH RELIEF [Suspect]
     Active Substance: DEXTROMETHORPHAN HYDROBROMIDE
     Indication: PHARYNGITIS
     Dosage: ?          QUANTITY:10 ML;?
     Route: 048
     Dates: start: 20170215, end: 20170217
  2. ADVIL [Concomitant]
     Active Substance: IBUPROFEN
  3. SYNTHROID [Concomitant]
     Active Substance: LEVOTHYROXINE SODIUM
  4. ROBITUSSIN 12 HOUR COUGH RELIEF [Suspect]
     Active Substance: DEXTROMETHORPHAN HYDROBROMIDE
     Indication: COUGH
     Dosage: ?          QUANTITY:10 ML;?
     Route: 048
     Dates: start: 20170215, end: 20170217
  5. TYLENOL [Concomitant]
     Active Substance: ACETAMINOPHEN

REACTIONS (3)
  - Confusional state [None]
  - Insomnia [None]
  - Feeling abnormal [None]

NARRATIVE: CASE EVENT DATE: 20170216
